FAERS Safety Report 7329272-0 (Version None)
Quarter: 2011Q1

REPORT INFORMATION
  Report Type: 
  Country: None (occurrence: None)
  Receive Date: 20110303
  Receipt Date: 20100726
  Transmission Date: 20110831
  Serious: Yes (Life-Threatening, Hospitalization)
  Sender: FDA-Public Use
  Company Number: B0667984A

PATIENT
  Sex: Female
  Weight: 50 kg

DRUGS (12)
  1. XELODA [Suspect]
     Dosage: 2400MG PER DAY
     Route: 048
     Dates: start: 20091016, end: 20091030
  2. MEXITIL [Suspect]
     Indication: NEURALGIA
     Route: 048
     Dates: start: 20090907, end: 20091109
  3. MUCOSTA [Concomitant]
     Indication: PAIN MANAGEMENT
     Route: 048
     Dates: end: 20091120
  4. MAGMITT [Concomitant]
     Indication: CONSTIPATION
     Route: 048
     Dates: end: 20091120
  5. OXYCONTIN [Concomitant]
     Indication: PAIN MANAGEMENT
     Route: 048
     Dates: end: 20091120
  6. DUROTEP [Concomitant]
     Indication: PAIN MANAGEMENT
     Route: 062
     Dates: end: 20091120
  7. TYKERB [Suspect]
     Indication: BREAST CANCER
     Dosage: 1250MG PER DAY
     Route: 048
     Dates: start: 20091015, end: 20091120
  8. HYPEN [Concomitant]
     Indication: PAIN MANAGEMENT
     Route: 048
     Dates: end: 20091120
  9. CEROCRAL [Concomitant]
     Indication: PAIN MANAGEMENT
     Route: 048
     Dates: end: 20091120
  10. BETAMETHASONE [Concomitant]
     Indication: PAIN MANAGEMENT
     Dosage: 1IUAX PER DAY
     Route: 048
     Dates: end: 20091120
  11. GABAPENTIN [Concomitant]
     Indication: PAIN MANAGEMENT
     Route: 048
     Dates: end: 20091120
  12. OXINORM [Concomitant]
     Indication: PAIN MANAGEMENT
     Route: 048
     Dates: end: 20091120

REACTIONS (3)
  - DRUG LEVEL INCREASED [None]
  - SEPSIS [None]
  - ILEUS [None]
